FAERS Safety Report 8598029-5 (Version None)
Quarter: 2012Q3

REPORT INFORMATION
  Report Type: 
  Country: None (occurrence: None)
  Receive Date: 20120816
  Receipt Date: 20120813
  Transmission Date: 20120928
  Serious: Yes (Other)
  Sender: FDA-Public Use
  Company Number: GB-ABBOTT-12P-167-0956007-00

PATIENT
  Sex: Female
  Weight: 122 kg

DRUGS (3)
  1. HUMIRA [Suspect]
     Indication: PSORIASIS
     Route: 058
     Dates: start: 20090401
  2. LEVEMIR [Concomitant]
     Indication: DIABETES MELLITUS
     Dosage: VARIABLE DOSES
     Route: 058
  3. NOVORAPID [Concomitant]
     Indication: DIABETES MELLITUS
     Dosage: VARIABLE DOSES
     Route: 058

REACTIONS (2)
  - BREAST CANCER IN SITU [None]
  - NIPPLE EXUDATE BLOODY [None]
